FAERS Safety Report 18681153 (Version 2)
Quarter: 2021Q4

REPORT INFORMATION
  Report Type: Report from Study
  Country: US (occurrence: US)
  Receive Date: 20201229
  Receipt Date: 20211229
  Transmission Date: 20220303
  Serious: No
  Sender: FDA-Public Use
  Company Number: US-CLOVIS ONCOLOGY-CLO-2020-002338

PATIENT
  Sex: Female
  Weight: 87.075 kg

DRUGS (6)
  1. RUBRACA [Suspect]
     Active Substance: RUCAPARIB CAMSYLATE
     Indication: Ovarian cancer
     Dosage: 2, BID
  2. D-MANNOSE [Concomitant]
     Indication: Product used for unknown indication
     Dosage: UNKNOWN DOSE
  3. EVENING PRIMROSE OIL [OENOTHERA BIENNIS] [Concomitant]
     Indication: Product used for unknown indication
     Dosage: 500 MILLIGRAM, HS
  4. NIACIN NO FLUSH [Concomitant]
     Indication: Product used for unknown indication
     Dosage: 750 MILLIGRAM
  5. PROBIOTIC BLEND [Concomitant]
     Indication: Product used for unknown indication
     Dosage: UNKNOWN DOSE
  6. VITAMIN B12 [Concomitant]
     Active Substance: CYANOCOBALAMIN
     Indication: Product used for unknown indication
     Dosage: 2500 MC

REACTIONS (6)
  - Hot flush [Not Recovered/Not Resolved]
  - Constipation [Not Recovered/Not Resolved]
  - Insomnia [Not Recovered/Not Resolved]
  - Taste disorder [Not Recovered/Not Resolved]
  - Nausea [Not Recovered/Not Resolved]
  - Fatigue [Not Recovered/Not Resolved]
